FAERS Safety Report 7809523-6 (Version None)
Quarter: 2011Q4

REPORT INFORMATION
  Report Type: 
  Country: None (occurrence: None)
  Receive Date: 20111012
  Receipt Date: 20111003
  Transmission Date: 20120403
  Serious: Yes (Other)
  Sender: FDA-Public Use
  Company Number: PHHY2010US55163

PATIENT
  Sex: Male
  Weight: 90.703 kg

DRUGS (6)
  1. ATACAND [Concomitant]
  2. VITAMIN D [Concomitant]
  3. GLEEVEC [Suspect]
     Indication: CHRONIC MYELOID LEUKAEMIA
     Dosage: 400 MG, DAILY
     Route: 048
     Dates: start: 20091201
  4. ASPIRIN [Concomitant]
  5. HYDROCHLOROTHIAZIDE [Concomitant]
  6. AVAPRO [Concomitant]

REACTIONS (5)
  - JOINT SWELLING [None]
  - FLUID RETENTION [None]
  - DIARRHOEA [None]
  - RENAL FAILURE CHRONIC [None]
  - EYE SWELLING [None]
